FAERS Safety Report 10652066 (Version 1)
Quarter: 2014Q4

REPORT INFORMATION
  Report Type: Spontaneous
  Country: US (occurrence: None)
  Receive Date: 20141205
  Receipt Date: 20141205
  Transmission Date: 20150529
  Serious: Yes (Other)
  Sender: FDA-Public Use
  Company Number: 2014SUN00500

PATIENT
  Age: 26 Year
  Sex: Male

DRUGS (1)
  1. OXCARBAZEPINE TABLETS, 300 MG (OXCARBAZEPINE) TABLET, 300MG [Suspect]
     Active Substance: OXCARBAZEPINE
     Indication: SEIZURE
     Dosage: ONE IN MORNING AND TWO AT BED TIME, ORAL
     Route: 048
     Dates: start: 20140211

REACTIONS (2)
  - Drug ineffective [None]
  - Epilepsy [None]
